FAERS Safety Report 12945865 (Version 1)
Quarter: 2016Q4

REPORT INFORMATION
  Report Type: Report from Study
  Country: IT (occurrence: IT)
  Receive Date: 20161116
  Receipt Date: 20161116
  Transmission Date: 20170207
  Serious: Yes (Other)
  Sender: FDA-Public Use
  Company Number: IT-BRISTOL-MYERS SQUIBB COMPANY-BMS-2016-023855

PATIENT
  Age: 55 Year
  Sex: Male

DRUGS (2)
  1. NIVOLUMAB [Suspect]
     Active Substance: NIVOLUMAB
     Indication: RENAL CELL CARCINOMA
     Dosage: 3 MG/KG, Q2WK
     Route: 042
  2. AUGMENTIN [Concomitant]
     Active Substance: AMOXICILLIN\CLAVULANATE POTASSIUM
     Indication: TOOTH EXTRACTION
     Dosage: 1 G, BID
     Route: 065
     Dates: start: 20160312, end: 20160319

REACTIONS (11)
  - Musculoskeletal pain [Unknown]
  - Erythema [Unknown]
  - Tinea versicolour [Unknown]
  - Facial paralysis [Recovered/Resolved]
  - Asthenia [Recovered/Resolved]
  - Flushing [Unknown]
  - Vomiting [Unknown]
  - Visual field defect [Recovered/Resolved]
  - Constipation [Unknown]
  - Oral fungal infection [Unknown]
  - Dizziness [Unknown]

NARRATIVE: CASE EVENT DATE: 20160317
